FAERS Safety Report 6619185-1 (Version None)
Quarter: 2010Q1

REPORT INFORMATION
  Report Type: 
  Country: None (occurrence: None)
  Receive Date: 20100308
  Receipt Date: 20100301
  Transmission Date: 20100710
  Serious: Yes (Life-Threatening, Hospitalization)
  Sender: FDA-Public Use
  Company Number: JP-ROCHE-688859

PATIENT
  Sex: Female
  Weight: 59 kg

DRUGS (4)
  1. PEGASYS [Suspect]
     Indication: HEPATITIS C
     Dosage: FORM: INJECTION
     Route: 058
     Dates: start: 20100127, end: 20100210
  2. CRAVIT [Suspect]
     Indication: URINARY TRACT INFECTION
     Route: 048
     Dates: start: 20100203, end: 20100205
  3. PARIET [Concomitant]
     Route: 048
     Dates: start: 20091001, end: 20100217
  4. MUCOSTA [Concomitant]
     Route: 048
     Dates: start: 20091001

REACTIONS (2)
  - CHOLESTASIS [None]
  - ERYTHEMA MULTIFORME [None]
